FAERS Safety Report 5995445-2 (Version None)
Quarter: 2008Q4

REPORT INFORMATION
  Report Type: 
  Country: None (occurrence: None)
  Receive Date: 20081212
  Receipt Date: 20080926
  Transmission Date: 20090506
  Serious: No
  Sender: FDA-Public Use
  Company Number: US-ABBOTT-08P-163-0478832-00

PATIENT
  Sex: Male
  Weight: 124.85 kg

DRUGS (4)
  1. HUMIRA [Suspect]
     Indication: RHEUMATOID ARTHRITIS
     Route: 058
     Dates: start: 20070101
  2. METHOTREXATE [Concomitant]
     Indication: RHEUMATOID ARTHRITIS
     Dosage: 4 TABS ONCE A WEEK
     Route: 048
     Dates: start: 20080401
  3. METHOTREXATE [Concomitant]
     Indication: PROPHYLAXIS
  4. NABUMETONE [Concomitant]
     Indication: ANTIINFLAMMATORY THERAPY
     Route: 048

REACTIONS (2)
  - ARTHROPATHY [None]
  - GAIT DISTURBANCE [None]
